FAERS Safety Report 6803322-X (Version None)
Quarter: 2010Q2

REPORT INFORMATION
  Report Type: 
  Country: None (occurrence: None)
  Receive Date: 20100628
  Receipt Date: 20100617
  Transmission Date: 20101027
  Serious: Yes (Other)
  Sender: FDA-Public Use
  Company Number: US-SANOFI-AVENTIS-2010SA031583

PATIENT
  Age: 82 Year
  Sex: Male
  Weight: 102.4 kg

DRUGS (4)
  1. LANTUS [Suspect]
     Dosage: DOSE:30 UNIT(S)
     Route: 058
  2. OPTICLICK [Suspect]
  3. ALL OTHER THERAPEUTIC PRODUCTS [Concomitant]
  4. HUMALOG [Concomitant]
     Dosage: 6 UNITS AT 6 PM DOSE:6 UNIT(S)
     Route: 058

REACTIONS (2)
  - KNEE ARTHROPLASTY [None]
  - PAIN [None]
